FAERS Safety Report 13280403 (Version 3)
Quarter: 2017Q3

REPORT INFORMATION
  Report Type: Spontaneous
  Country: US (occurrence: US)
  Receive Date: 20170301
  Receipt Date: 20170710
  Transmission Date: 20171127
  Serious: Yes (Death, Other)
  Sender: FDA-Public Use
  Company Number: US-ROCHE-1900167

PATIENT
  Age: 50 Year
  Sex: Female
  Weight: 59.93 kg

DRUGS (5)
  1. ALECENSA [Suspect]
     Active Substance: ALECTINIB HYDROCHLORIDE
     Indication: LUNG NEOPLASM MALIGNANT
     Dosage: 4 PO BID
     Route: 048
     Dates: start: 20160419
  2. MELOXICAM. [Concomitant]
     Active Substance: MELOXICAM
  3. TRAMADOL. [Concomitant]
     Active Substance: TRAMADOL
  4. BUTABARBITAL [Concomitant]
     Active Substance: BUTABARBITAL
  5. ONDANSETRON [Concomitant]
     Active Substance: ONDANSETRON

REACTIONS (3)
  - Death [Fatal]
  - Vision blurred [Unknown]
  - Vertigo [Unknown]

NARRATIVE: CASE EVENT DATE: 20170607
